FAERS Safety Report 12605064 (Version 1)
Quarter: 2016Q3

REPORT INFORMATION
  Report Type: Spontaneous
  Country: US (occurrence: US)
  Receive Date: 20160728
  Receipt Date: 20160728
  Transmission Date: 20161109
  Serious: No
  Sender: FDA-Public Use
  Company Number: US-ASTRAZENECA-2016SE79315

PATIENT
  Age: 1107 Month
  Sex: Male
  Weight: 70.3 kg

DRUGS (1)
  1. CRESTOR [Suspect]
     Active Substance: ROSUVASTATIN CALCIUM
     Indication: BLOOD CHOLESTEROL INCREASED
     Dosage: SPLITS 40 MG TABLET TO TAKE A DOSE OF 20 MG TWICE A WEEK
     Route: 048
     Dates: start: 201503

REACTIONS (2)
  - Intentional product misuse [Unknown]
  - Urticaria [Unknown]

NARRATIVE: CASE EVENT DATE: 201503
